FAERS Safety Report 21810872 (Version 1)
Quarter: 2023Q1

REPORT INFORMATION
  Report Type: Spontaneous
  Country: US (occurrence: US)
  Receive Date: 20230103
  Receipt Date: 20230103
  Transmission Date: 20230417
  Serious: Yes (Hospitalization)
  Sender: FDA-Public Use
  Company Number: US-DSJP-DSU-2022-147359

PATIENT
  Sex: Female

DRUGS (1)
  1. ENHERTU [Suspect]
     Active Substance: FAM-TRASTUZUMAB DERUXTECAN-NXKI
     Indication: HER2 negative breast cancer
     Dosage: UNK, ONCE EVERY 3 WK
     Route: 041
     Dates: start: 20221118

REACTIONS (16)
  - Craniocerebral injury [Unknown]
  - Movement disorder [Unknown]
  - Blood calcium increased [Unknown]
  - Blood glucose increased [Unknown]
  - Alopecia [Unknown]
  - Fall [Recovering/Resolving]
  - Loss of control of legs [Unknown]
  - Movement disorder [Unknown]
  - Head injury [Unknown]
  - Hallucination [Unknown]
  - Aphasia [Unknown]
  - Amnesia [Unknown]
  - Peripheral swelling [Unknown]
  - Hospice care [Unknown]
  - Infusion related reaction [Unknown]
  - Off label use [Unknown]

NARRATIVE: CASE EVENT DATE: 20220101
